FAERS Safety Report 13624386 (Version 3)
Quarter: 2017Q3

REPORT INFORMATION
  Report Type: Spontaneous
  Country: US (occurrence: US)
  Receive Date: 20170608
  Receipt Date: 20170726
  Transmission Date: 20171127
  Serious: Yes (Hospitalization, Other)
  Sender: FDA-Public Use
  Company Number: US-CLOVIS ONCOLOGY-CLO-2017-000342

PATIENT
  Age: 70 Year
  Sex: Female

DRUGS (2)
  1. RUBRACA [Suspect]
     Active Substance: RUCAPARIB CAMSYLATE
     Indication: OVARIAN CANCER
     Dosage: 300 MG, BID
     Route: 048
     Dates: start: 20170417, end: 20170517
  2. RUBRACA [Suspect]
     Active Substance: RUCAPARIB CAMSYLATE
     Dosage: 600 MG, BID
     Route: 048
     Dates: start: 20170518, end: 20170707

REACTIONS (5)
  - Underdose [Unknown]
  - Metastases to skin [Unknown]
  - Lymphadenopathy [Unknown]
  - Carbohydrate antigen 125 increased [Unknown]
  - Fatigue [Unknown]

NARRATIVE: CASE EVENT DATE: 2017
